FAERS Safety Report 21249907 (Version 6)
Quarter: 2025Q2

REPORT INFORMATION
  Report Type: Report from Study
  Country: US (occurrence: US)
  Receive Date: 20220824
  Receipt Date: 20250403
  Transmission Date: 20250716
  Serious: No
  Sender: CHIESI
  Company Number: US-AMRYT PHARMACEUTICALS DAC-AEGR005991

PATIENT
  Age: 30 Year
  Sex: Female
  Weight: 37.8 kg

DRUGS (3)
  1. METRELEPTIN [Suspect]
     Active Substance: METRELEPTIN
     Indication: Congenital generalised lipodystrophy
     Dates: end: 2022
  2. METRELEPTIN [Suspect]
     Active Substance: METRELEPTIN
     Dosage: 2.5 MILLIGRAM, BID
     Route: 058
     Dates: start: 20220809
  3. FOLIC ACID [Concomitant]
     Active Substance: FOLIC ACID
     Indication: Product used for unknown indication

REACTIONS (4)
  - Maternal exposure during pregnancy [Recovered/Resolved]
  - Live birth [Recovered/Resolved]
  - Product supply issue [Unknown]
  - Therapy interrupted [Recovered/Resolved]

NARRATIVE: CASE EVENT DATE: 20220501
